FAERS Safety Report 4828719-9 (Version None)
Quarter: 2005Q4

REPORT INFORMATION
  Report Type: 
  Country: None (occurrence: None)
  Receive Date: 20051115
  Receipt Date: 20051007
  Transmission Date: 20060501
  Serious: Yes (Hospitalization)
  Sender: FDA-Public Use
  Company Number: US-MERCK-0510USA05618

PATIENT
  Age: 52 Year
  Sex: Female
  Weight: 88 kg

DRUGS (2)
  1. VIOXX [Suspect]
     Indication: ARTHRITIS
     Route: 048
     Dates: start: 20031110, end: 20040901
  2. PAXIL [Concomitant]
     Indication: DEPRESSION
     Route: 065
     Dates: start: 20000101

REACTIONS (3)
  - ABDOMINAL PAIN [None]
  - INTRAOCULAR PRESSURE INCREASED [None]
  - MYOCARDIAL INFARCTION [None]
